FAERS Safety Report 4724220-1 (Version None)
Quarter: 2005Q3

REPORT INFORMATION
  Report Type: 
  Country: None (occurrence: None)
  Receive Date: 20050726
  Receipt Date: 20050719
  Transmission Date: 20060218
  Serious: Yes (Hospitalization, Other)
  Sender: FDA-Public Use
  Company Number: PHBS2005AR10470

PATIENT
  Age: 5 Year
  Sex: Female

DRUGS (1)
  1. CLOZAPINE [Suspect]
     Indication: ACCIDENTAL EXPOSURE
     Dosage: UNK, ONCE/SINGLE
     Route: 065
     Dates: start: 20050719, end: 20050719

REACTIONS (9)
  - ACCIDENTAL DRUG INTAKE BY CHILD [None]
  - ACCIDENTAL EXPOSURE [None]
  - BLADDER CATHETERISATION [None]
  - COMA [None]
  - DRUG TOXICITY [None]
  - HYPOREFLEXIA [None]
  - LOSS OF CONSCIOUSNESS [None]
  - MIOSIS [None]
  - SALIVARY HYPERSECRETION [None]
